FAERS Safety Report 19827062 (Version 1)
Quarter: 2021Q3

REPORT INFORMATION
  Report Type: Spontaneous
  Country: US (occurrence: US)
  Receive Date: 20210914
  Receipt Date: 20210914
  Transmission Date: 20211014
  Serious: No
  Sender: FDA-Public Use
  Company Number: None

PATIENT
  Sex: Male
  Weight: 85.64 kg

DRUGS (19)
  1. IMATINIB. [Suspect]
     Active Substance: IMATINIB MESYLATE
     Indication: GASTROINTESTINAL STROMAL TUMOUR
     Route: 048
     Dates: start: 20210108
  2. BUMETANIDE. [Concomitant]
     Active Substance: BUMETANIDE
  3. LOTEMAX [Concomitant]
     Active Substance: LOTEPREDNOL ETABONATE
  4. MOXIFLOXACIN. [Concomitant]
     Active Substance: MOXIFLOXACIN
  5. POTASSIUM [Concomitant]
     Active Substance: POTASSIUM
  6. PROCHLORPERAZINE. [Concomitant]
     Active Substance: PROCHLORPERAZINE
  7. FLUTICASONE. [Concomitant]
     Active Substance: FLUTICASONE
  8. LOSARTAN. [Concomitant]
     Active Substance: LOSARTAN
  9. MOMETASONE [Concomitant]
     Active Substance: MOMETASONE
  10. MULTIVITAMIN [Concomitant]
     Active Substance: VITAMINS
  11. VITAMIN D3 [Concomitant]
     Active Substance: CHOLECALCIFEROL
  12. PRENISOLONE [Concomitant]
     Active Substance: PREDNISOLONE
  13. ASPIRIN. [Concomitant]
     Active Substance: ASPIRIN
  14. CARVEDILOL. [Concomitant]
     Active Substance: CARVEDILOL
  15. METFORMIN [Concomitant]
     Active Substance: METFORMIN HYDROCHLORIDE
  16. OCULFLOX [Concomitant]
  17. PRADAXA [Concomitant]
     Active Substance: DABIGATRAN ETEXILATE MESYLATE
  18. PROLENSA [Concomitant]
     Active Substance: BROMFENAC SODIUM
  19. ROSUVASTATIN. [Concomitant]
     Active Substance: ROSUVASTATIN

REACTIONS (4)
  - Therapy interrupted [None]
  - Pruritus [None]
  - Nausea [None]
  - Dry eye [None]
